FAERS Safety Report 21241231 (Version 1)
Quarter: 2022Q3

REPORT INFORMATION
  Report Type: Spontaneous
  Country: US (occurrence: US)
  Receive Date: 20220823
  Receipt Date: 20220823
  Transmission Date: 20221027
  Serious: Yes (Hospitalization)
  Sender: FDA-Public Use
  Company Number: US-KVK-TECH, INC-20220800064

PATIENT
  Age: 17 Month
  Sex: Male

DRUGS (3)
  1. OXYCODONE HYDROCHLORIDE [Suspect]
     Active Substance: OXYCODONE HYDROCHLORIDE
     Indication: Product used for unknown indication
     Dosage: UNK, UNKNOWN
     Route: 063
  2. FENTANYL [Suspect]
     Active Substance: FENTANYL
     Indication: Product used for unknown indication
     Dosage: UNK, UNKNOWN
     Route: 063
  3. MORPHINE [Suspect]
     Active Substance: MORPHINE
     Indication: Product used for unknown indication
     Dosage: UNK, UNKNOWN
     Route: 063

REACTIONS (12)
  - Tachycardia [Unknown]
  - Agitation [Unknown]
  - Irritability [Unknown]
  - Confusional state [Unknown]
  - Miosis [Unknown]
  - Acidosis [Unknown]
  - Hyperglycaemia [Unknown]
  - Lethargy [Unknown]
  - Respiratory depression [Unknown]
  - Somnolence [Unknown]
  - Exposure via breast milk [Unknown]
  - Off label use [Unknown]
